FAERS Safety Report 8000225-2 (Version None)
Quarter: 2011Q4

REPORT INFORMATION
  Report Type: 
  Country: None (occurrence: None)
  Receive Date: 20111220
  Receipt Date: 20111220
  Transmission Date: 20120403
  Serious: Yes (Other)
  Sender: FDA-Public Use
  Company Number: None

PATIENT
  Sex: Female

DRUGS (2)
  1. UNSPECIFIED ORAL CARE PRODUCT (STOMATOLOGICAL PREPARATION) UNSPECIFIED [Suspect]
     Indication: DENTAL DISORDER PROPHYLAXIS
     Dosage: ORAL
  2. LISTERINE TOTAL CARE SENSITIVE (ORAL CARE PRODUCTS) LIQUID [Suspect]
     Indication: PRODUCT USED FOR UNKNOWN INDICATION
     Dosage: ORAL
     Route: 048

REACTIONS (3)
  - ORAL DISCOMFORT [None]
  - MOUTH ULCERATION [None]
  - APPLICATION SITE BURN [None]
